FAERS Safety Report 7416858-8 (Version None)
Quarter: 2011Q2

REPORT INFORMATION
  Report Type: 
  Country: None (occurrence: None)
  Receive Date: 20110415
  Receipt Date: 20110401
  Transmission Date: 20111010
  Serious: Yes (Other)
  Sender: FDA-Public Use
  Company Number: DE-JNJFOC-20110312539

PATIENT
  Age: 48 Year
  Sex: Female

DRUGS (6)
  1. MYCOPHENOLATE MOFETIL [Concomitant]
  2. REMICADE [Suspect]
     Indication: SARCOIDOSIS
     Route: 042
  3. REMICADE [Suspect]
     Route: 042
  4. REMICADE [Suspect]
     Route: 042
  5. REMICADE [Suspect]
     Route: 042
  6. CLEXANE [Concomitant]
     Indication: INTRACRANIAL VENOUS SINUS THROMBOSIS
     Dosage: 0.8 ML

REACTIONS (3)
  - HYPERHIDROSIS [None]
  - NAUSEA [None]
  - CARDIOVASCULAR DISORDER [None]
